FAERS Safety Report 25460036 (Version 1)
Quarter: 2025Q2

REPORT INFORMATION
  Report Type: Spontaneous
  Country: US (occurrence: US)
  Receive Date: 20250620
  Receipt Date: 20250620
  Transmission Date: 20250717
  Serious: No
  Sender: BIOCRYST PHARMACEUTICALS
  Company Number: US-BIOCRYST PHARMACEUTICALS, INC.-2025BCR00556

PATIENT

DRUGS (2)
  1. ORLADEYO [Suspect]
     Active Substance: BEROTRALSTAT HYDROCHLORIDE
     Indication: Hereditary angioedema
     Dates: start: 20250430
  2. FIRAZYR [Concomitant]
     Active Substance: ICATIBANT ACETATE
     Dates: start: 20250430

REACTIONS (4)
  - Urticaria [Unknown]
  - Headache [Recovered/Resolved]
  - Oral infection [Unknown]
  - Treatment noncompliance [Unknown]

NARRATIVE: CASE EVENT DATE: 20250430
